FAERS Safety Report 8480219 (Version 2)
Quarter: 2016Q1

REPORT INFORMATION
  Report Type: Report from Study
  Country: US (occurrence: US)
  Receive Date: 20120328
  Receipt Date: 20160315
  Transmission Date: 20160526
  Serious: Yes (Hospitalization, Other)
  Sender: FDA-Public Use
  Company Number: US-ROCHE-1053216

PATIENT
  Sex: Female
  Weight: 98.79 kg

DRUGS (30)
  1. NUTROPIN AQ [Suspect]
     Active Substance: SOMATROPIN
     Dosage: 7 INJECTION /WEEK
     Route: 058
  2. PHENERGAN [Concomitant]
     Active Substance: PROMETHAZINE HYDROCHLORIDE
     Dosage: ONCE IN 4-6 HOURS.
     Route: 048
  3. CRESTOR [Concomitant]
     Active Substance: ROSUVASTATIN CALCIUM
     Route: 048
  4. OPANA ER [Concomitant]
     Active Substance: OXYMORPHONE HYDROCHLORIDE
     Route: 048
  5. PREMARIN [Concomitant]
     Active Substance: ESTROGENS, CONJUGATED
     Route: 048
  6. LYRICA [Concomitant]
     Active Substance: PREGABALIN
     Route: 048
  7. DEXAMETHASONE. [Concomitant]
     Active Substance: DEXAMETHASONE
     Route: 048
  8. MAPROTILINE [Concomitant]
     Active Substance: MAPROTILINE
     Route: 048
  9. HYDROXYZINE HCL [Concomitant]
     Active Substance: HYDROXYZINE HYDROCHLORIDE
     Route: 048
  10. REQUIP [Concomitant]
     Active Substance: ROPINIROLE HYDROCHLORIDE
     Dosage: 2 TABLET ORAL ONCE DAY
     Route: 048
  11. VALIUM [Suspect]
     Active Substance: DIAZEPAM
     Indication: PRODUCT USED FOR UNKNOWN INDICATION
     Route: 048
  12. CLONIDINE. [Concomitant]
     Active Substance: CLONIDINE
     Route: 048
  13. OMEPRAZOLE. [Concomitant]
     Active Substance: OMEPRAZOLE
     Route: 048
  14. EFFEXOR [Concomitant]
     Active Substance: VENLAFAXINE HYDROCHLORIDE
     Dosage: 1 IN MORNING ,2 TABLET IN EVENING
     Route: 048
  15. LIBRAX [Concomitant]
     Active Substance: CHLORDIAZEPOXIDE HYDROCHLORIDE\CLIDINIUM BROMIDE
     Route: 048
  16. FOLIC ACID. [Concomitant]
     Active Substance: FOLIC ACID
     Route: 048
  17. NUTROPIN AQ [Suspect]
     Active Substance: SOMATROPIN
     Indication: HYPOPITUITARISM
     Route: 058
  18. METFORMIN [Concomitant]
     Active Substance: METFORMIN HYDROCHLORIDE
     Route: 048
  19. MORPHINE [Concomitant]
     Active Substance: MORPHINE
     Route: 048
  20. ENALAPRIL MALEATE. [Concomitant]
     Active Substance: ENALAPRIL MALEATE
     Route: 048
  21. FUROSEMIDE. [Concomitant]
     Active Substance: FUROSEMIDE
     Route: 048
  22. BYSTOLIC [Concomitant]
     Active Substance: NEBIVOLOL HYDROCHLORIDE
     Route: 048
  23. OXYCODONE [Concomitant]
     Active Substance: OXYCODONE
     Dosage: ONCE IN 4-6 HOURS
     Route: 048
  24. NABUMETONE. [Concomitant]
     Active Substance: NABUMETONE
     Route: 048
  25. PANTOPRAZOLE [Concomitant]
     Active Substance: PANTOPRAZOLE SODIUM
     Route: 048
  26. CARTIA (UNITED STATES) [Concomitant]
     Route: 048
  27. TOPAMAX [Concomitant]
     Active Substance: TOPIRAMATE
     Route: 048
  28. DICLOFENAC POTASSIUM. [Concomitant]
     Active Substance: DICLOFENAC POTASSIUM
     Route: 065
  29. LEVOXYL [Concomitant]
     Active Substance: LEVOTHYROXINE SODIUM
     Route: 048
  30. ABILIFY [Concomitant]
     Active Substance: ARIPIPRAZOLE
     Route: 048

REACTIONS (17)
  - Arthralgia [Unknown]
  - Polydipsia [Unknown]
  - Weight increased [Unknown]
  - Fall [Unknown]
  - Palpitations [Unknown]
  - Vision blurred [Unknown]
  - Nocturia [Unknown]
  - Colitis [Unknown]
  - Contusion [Unknown]
  - Diarrhoea [Unknown]
  - Dizziness [Unknown]
  - Constipation [Unknown]
  - Anxiety [Unknown]
  - Haemorrhage [Unknown]
  - Musculoskeletal discomfort [Unknown]
  - Fatigue [Unknown]
  - Temperature intolerance [Unknown]
